FAERS Safety Report 11625541 (Version 1)
Quarter: 2015Q4

REPORT INFORMATION
  Report Type: Spontaneous
  Country: BR (occurrence: BR)
  Receive Date: 20151013
  Receipt Date: 20151013
  Transmission Date: 20160304
  Serious: Yes (Hospitalization)
  Sender: FDA-Public Use
  Company Number: BR-PFIZER INC-2015337130

PATIENT
  Age: 80 Year
  Sex: Female
  Weight: 75 kg

DRUGS (1)
  1. CELEBRA [Suspect]
     Active Substance: CELECOXIB
     Indication: BLOOD PRESSURE MEASUREMENT
     Dosage: 200MG (1 CAPSULE) TWICE DAILY (EVERY 12 HOURS)
     Route: 048
     Dates: start: 2012

REACTIONS (2)
  - Hypercoagulation [Unknown]
  - Product use issue [Unknown]

NARRATIVE: CASE EVENT DATE: 2012
